FAERS Safety Report 5035786-9 (Version None)
Quarter: 2006Q2

REPORT INFORMATION
  Report Type: 
  Country: None (occurrence: None)
  Receive Date: 20060526
  Receipt Date: 20060421
  Transmission Date: 20061013
  Serious: No
  Sender: FDA-Public Use
  Company Number: FABR-11498

PATIENT
  Age: 33 Year
  Sex: Male
  Weight: 82.5547 kg

DRUGS (3)
  1. FABRAZYME [Suspect]
     Indication: FABRY'S DISEASE
     Dates: start: 20050901
  2. SYNTHROID [Concomitant]
  3. TEGRETOL [Concomitant]

REACTIONS (5)
  - DIARRHOEA [None]
  - MALAISE [None]
  - OEDEMA PERIPHERAL [None]
  - PHARYNGOLARYNGEAL PAIN [None]
  - RHINORRHOEA [None]
